FAERS Safety Report 13014201 (Version 5)
Quarter: 2018Q1

REPORT INFORMATION
  Report Type: Report from Study
  Country: None (occurrence: NL)
  Receive Date: 20161209
  Receipt Date: 20180111
  Transmission Date: 20180508
  Serious: Yes (Hospitalization)
  Sender: FDA-Public Use
  Company Number: NL-ABBVIE-16K-114-1803918-00

PATIENT
  Sex: Male
  Weight: 64 kg

DRUGS (3)
  1. DUODOPA [Suspect]
     Active Substance: CARBIDOPA\LEVODOPA
     Indication: PRODUCT USED FOR UNKNOWN INDICATION
     Dosage: MORNING DOSE:  6;  CONTINUOUS DOSE: 4; EXTRA DOSE: 3.7; NIGHT DOSE: 3
     Route: 050
     Dates: start: 20081128
  2. DUODOPA [Suspect]
     Active Substance: CARBIDOPA\LEVODOPA
     Dosage: MD: 6.0, CD: 4.8, ED: 4.0, CND: 3.2, END: 4.0
     Route: 050
  3. DUODOPA [Suspect]
     Active Substance: CARBIDOPA\LEVODOPA
     Dosage: MD: 6, CD: 4.6, ED: 4, CND: 3.2
     Route: 050

REACTIONS (16)
  - Speech disorder [Recovering/Resolving]
  - Dyskinesia [Recovered/Resolved]
  - Mobility decreased [Not Recovered/Not Resolved]
  - Stoma site discharge [Recovered/Resolved]
  - Fatigue [Unknown]
  - Stoma site erythema [Recovering/Resolving]
  - Weight increased [Not Recovered/Not Resolved]
  - Gait disturbance [Not Recovered/Not Resolved]
  - Stoma site extravasation [Recovered/Resolved]
  - Bradykinesia [Not Recovered/Not Resolved]
  - Abnormal dreams [Not Recovered/Not Resolved]
  - Hallucination, visual [Recovered/Resolved]
  - Muscle tightness [Unknown]
  - Nocturia [Not Recovered/Not Resolved]
  - Muscle rigidity [Not Recovered/Not Resolved]
  - Drug effect incomplete [Not Recovered/Not Resolved]
